FAERS Safety Report 9079452 (Version 1)
Quarter: 2013Q1

REPORT INFORMATION
  Report Type: Report from Study
  Country: US (occurrence: US)
  Receive Date: 20130130
  Receipt Date: 20130130
  Transmission Date: 20140127
  Serious: No
  Sender: FDA-Public Use
  Company Number: US-ABBOTT-12P-163-0960056-00

PATIENT
  Age: 63 Year
  Sex: Female

DRUGS (11)
  1. HUMIRA 40 MG/ 0.8 ML PRE-FILLED SYRINGE [Suspect]
     Indication: RHEUMATOID ARTHRITIS
     Dates: start: 20110222
  2. TENORMIN [Concomitant]
     Indication: HYPERTENSION
  3. DIAZIDE [Concomitant]
     Indication: HYPERTENSION
     Dosage: 37.5 MG DAILY
  4. FOLIC ACID [Concomitant]
     Indication: SUPPLEMENTATION THERAPY
     Dosage: 2 MG DAILY
  5. METHOTREXATE [Concomitant]
     Indication: RHEUMATOID ARTHRITIS
     Dosage: WEEKLY
  6. ESTRADIOL [Concomitant]
     Indication: HORMONE REPLACEMENT THERAPY
     Dosage: 0.5 MG DAILY
  7. VERAPAMIL [Concomitant]
     Indication: HYPERTENSION
  8. PROZAC [Concomitant]
     Indication: DEPRESSION
     Dosage: 20 MG DAILY
  9. FLEXERIL [Concomitant]
     Indication: INSOMNIA
     Dosage: 10 MG, 2 TABS AT NIGHT
  10. XANAX [Concomitant]
     Indication: INSOMNIA
     Dosage: AT BEDTIME, AS REQUIRED
  11. PRAVACHOL [Concomitant]
     Indication: BLOOD CHOLESTEROL INCREASED
     Dosage: 40 MG DAILY

REACTIONS (4)
  - Respiratory disorder [Recovering/Resolving]
  - Respiratory tract congestion [Recovering/Resolving]
  - Urinary tract infection [Recovering/Resolving]
  - Conjunctivitis [Recovering/Resolving]
